FAERS Safety Report 8434485-0 (Version None)
Quarter: 2012Q2

REPORT INFORMATION
  Report Type: 
  Country: None (occurrence: None)
  Receive Date: 20120614
  Receipt Date: 20120606
  Transmission Date: 20120825
  Serious: Yes (Hospitalization)
  Sender: FDA-Public Use
  Company Number: DE-BIOGENIDEC-2012BI019954

PATIENT
  Age: 35 Year
  Sex: Male
  Weight: 115 kg

DRUGS (2)
  1. AVONEX [Suspect]
     Indication: MULTIPLE SCLEROSIS
     Route: 030
     Dates: start: 20120201, end: 20120608
  2. METOPROLOL SUCCINATE [Concomitant]
     Indication: ANXIETY DISORDER
     Dates: start: 20040101

REACTIONS (1)
  - EPILEPSY [None]
